FAERS Safety Report 19483734 (Version 1)
Quarter: 2021Q3

REPORT INFORMATION
  Report Type: Spontaneous
  Country: US (occurrence: US)
  Receive Date: 20210701
  Receipt Date: 20210701
  Transmission Date: 20211014
  Serious: Yes (Life-Threatening, Other)
  Sender: FDA-Public Use
  Company Number: US-FRESENIUS KABI-FK202106556

PATIENT
  Age: 73 Year
  Sex: Female
  Weight: 71 kg

DRUGS (6)
  1. PENTAMIDINE [Concomitant]
     Active Substance: PENTAMIDINE
     Indication: PROPHYLAXIS
     Route: 042
     Dates: start: 20200928
  2. TOCILIZUMAB. [Suspect]
     Active Substance: TOCILIZUMAB
     Indication: PRODUCT USED FOR UNKNOWN INDICATION
     Route: 042
     Dates: start: 20201004
  3. FLUDARABINE [Suspect]
     Active Substance: FLUDARABINE PHOSPHATE
     Indication: B-CELL LYMPHOMA
     Dosage: FLUDARABINE (FLUDARABINE) (INJECTION FOR INFUSION)
     Route: 042
     Dates: start: 20200925, end: 20200927
  4. LEVOTHYROXINE. [Concomitant]
     Active Substance: LEVOTHYROXINE
     Indication: HYPOTHYROIDISM
     Dosage: LEVOTHYROXINE (LEVOTHYROXINE) (UNKNOWN)
     Route: 048
     Dates: start: 20200228
  5. CYCLOPHOSPHAMIDE. [Suspect]
     Active Substance: CYCLOPHOSPHAMIDE
     Indication: B-CELL LYMPHOMA
     Dosage: CYCLOPHOSPHAMIDE (CYCLOPHOSPHAMIDE) (INJECTION FOR INFUSION)
     Route: 042
     Dates: start: 20200925, end: 20200927
  6. VALACICLOVIR [Concomitant]
     Active Substance: VALACYCLOVIR HYDROCHLORIDE
     Indication: PROPHYLAXIS
     Dosage: VALACYCLOVIR (VALACICLOVIR) (UNKNOWN)
     Route: 048
     Dates: start: 20200930

REACTIONS (1)
  - Myelodysplastic syndrome [Not Recovered/Not Resolved]

NARRATIVE: CASE EVENT DATE: 20210622
